FAERS Safety Report 9076147 (Version 1)
Quarter: 2013Q1

REPORT INFORMATION
  Report Type: Report from Study
  Country: US (occurrence: US)
  Receive Date: 20130129
  Receipt Date: 20130129
  Transmission Date: 20140127
  Serious: No
  Sender: FDA-Public Use
  Company Number: US-ABBOTT-12P-163-0921486-00

PATIENT
  Sex: Female
  Weight: 90.8 kg

DRUGS (21)
  1. HUMIRA 40 MG/0.8 ML PEN [Suspect]
     Indication: RHEUMATOID ARTHRITIS
     Route: 058
     Dates: start: 201203
  2. PREDNISONE [Concomitant]
     Indication: SWELLING
  3. EVISTA [Concomitant]
     Indication: BONE DISORDER
  4. VITAMIN D [Concomitant]
     Indication: VITAMIN SUPPLEMENTATION
  5. DIOVAN HCT [Concomitant]
     Indication: BLOOD PRESSURE
  6. SOTALOL [Concomitant]
     Indication: CARDIAC DISORDER
  7. AMITRIPTYLINE [Concomitant]
     Indication: ANXIETY
  8. PROZAC [Concomitant]
     Indication: ANTIDEPRESSANT THERAPY
  9. WARFARIN [Concomitant]
     Indication: ANTICOAGULANT THERAPY
  10. ASPIRIN [Concomitant]
     Indication: ANTICOAGULANT THERAPY
  11. LYRICA [Concomitant]
     Indication: FIBROMYALGIA
  12. HYDROXYCHLOROQUINE [Concomitant]
     Indication: ARTHRITIS
  13. VESICARE [Concomitant]
     Indication: BLADDER SPASM
  14. ALLOPURINOL [Concomitant]
     Indication: ARTHRITIS
  15. TYLENOL [Concomitant]
     Indication: PAIN
     Dosage: PRN
  16. ATROVENT [Concomitant]
     Indication: CHRONIC OBSTRUCTIVE PULMONARY DISEASE
  17. FLUOXETINE [Concomitant]
     Indication: PRODUCT USED FOR UNKNOWN INDICATION
  18. OXYBUTYNIN [Concomitant]
     Indication: PRODUCT USED FOR UNKNOWN INDICATION
  19. HYDROMORPHONE [Concomitant]
     Indication: PRODUCT USED FOR UNKNOWN INDICATION
  20. FLEXERIL [Concomitant]
     Indication: PRODUCT USED FOR UNKNOWN INDICATION
  21. RANITIDINE [Concomitant]
     Indication: PRODUCT USED FOR UNKNOWN INDICATION

REACTIONS (11)
  - Drug ineffective [Not Recovered/Not Resolved]
  - Pain in extremity [Not Recovered/Not Resolved]
  - Fall [Recovered/Resolved]
  - Pain in extremity [Not Recovered/Not Resolved]
  - Pain in extremity [Recovered/Resolved]
  - Pain in extremity [Not Recovered/Not Resolved]
  - Pain in extremity [Not Recovered/Not Resolved]
  - Back pain [Not Recovered/Not Resolved]
  - Back pain [Not Recovered/Not Resolved]
  - Contusion [Recovered/Resolved]
  - Contusion [Recovering/Resolving]
